FAERS Safety Report 19809291 (Version 2)
Quarter: 2021Q3

REPORT INFORMATION
  Report Type: Report from Study
  Country: US (occurrence: US)
  Receive Date: 20210908
  Receipt Date: 20210917
  Transmission Date: 20211014
  Serious: Yes (Other)
  Sender: FDA-Public Use
  Company Number: US-JAZZ-2021-US-016399

PATIENT
  Sex: Female

DRUGS (21)
  1. PREDNISONE. [Concomitant]
     Active Substance: PREDNISONE
  2. XYREM [Suspect]
     Active Substance: SODIUM OXYBATE
     Indication: NARCOLEPSY
     Dosage: 2.25 GRAM, BID
     Route: 048
     Dates: start: 201301, end: 201302
  3. ELIQUIS [Concomitant]
     Active Substance: APIXABAN
  4. IMURAN [Concomitant]
     Active Substance: AZATHIOPRINE
  5. VITAMIN D3 [Concomitant]
     Active Substance: CHOLECALCIFEROL
  6. XYREM [Suspect]
     Active Substance: SODIUM OXYBATE
     Dosage: 4 GRAM, BID
     Route: 048
     Dates: start: 201305
  7. TYLENOL EXTRA STRENGTH [Concomitant]
     Active Substance: ACETAMINOPHEN
  8. NORGESTREL/ETHINYL ESTRADIOL [Concomitant]
     Active Substance: ETHINYL ESTRADIOL\NORGESTREL
  9. PRIMIDONE. [Concomitant]
     Active Substance: PRIMIDONE
  10. RIBOFLAVIN [Concomitant]
     Active Substance: RIBOFLAVIN
  11. IBUPROFEN. [Concomitant]
     Active Substance: IBUPROFEN
  12. ZINC. [Concomitant]
     Active Substance: ZINC
  13. AMLODIPINE [Concomitant]
     Active Substance: AMLODIPINE BESYLATE
  14. NUVIGIL [Concomitant]
     Active Substance: ARMODAFINIL
  15. VITAMIN B12 [Concomitant]
     Active Substance: CYANOCOBALAMIN
  16. FAMOTIDINE. [Concomitant]
     Active Substance: FAMOTIDINE
  17. GABAPENTIN. [Concomitant]
     Active Substance: GABAPENTIN
  18. ONABOTULINUMTOXINA [Concomitant]
     Active Substance: ONABOTULINUMTOXINA
  19. XYREM [Suspect]
     Active Substance: SODIUM OXYBATE
     Dosage: DOSE ADJUSTMENT
     Route: 048
     Dates: start: 201302, end: 201305
  20. CELEBREX [Concomitant]
     Active Substance: CELECOXIB
  21. DIHYDROERGOTAMINE [Concomitant]
     Active Substance: DIHYDROERGOTAMINE

REACTIONS (8)
  - Migraine with aura [Unknown]
  - Cholecystitis acute [Unknown]
  - Troponin increased [Unknown]
  - Bile duct stone [Unknown]
  - Malaise [Unknown]
  - Nephrolithiasis [Unknown]
  - Cholelithiasis [Unknown]
  - Brachial plexopathy [Unknown]
